FAERS Safety Report 6176443-5 (Version None)
Quarter: 2009Q2

REPORT INFORMATION
  Report Type: 
  Country: None (occurrence: None)
  Receive Date: 20090501
  Receipt Date: 20090428
  Transmission Date: 20091009
  Serious: Yes (Hospitalization, Other)
  Sender: FDA-Public Use
  Company Number: DE-ROXANE LABORATORIES, INC.-2009-RO-00417RO

PATIENT
  Age: 1 Day
  Sex: Male
  Weight: 2 kg

DRUGS (9)
  1. DIAZEPAM [Suspect]
     Indication: ENDOTRACHEAL INTUBATION
     Dosage: 1.5MG
     Route: 042
  2. FLUMAZENIL [Concomitant]
     Indication: HYPOTONIA
     Dosage: .01MG
  3. FLUMAZENIL [Concomitant]
     Indication: WEANING FAILURE
  4. FLUID [Concomitant]
     Indication: METABOLIC ACIDOSIS
  5. FLUID [Concomitant]
     Indication: OLIGURIA
  6. FLUID [Concomitant]
     Indication: HYPERCHLORAEMIA
  7. SODIUM HYDROGEN CARBONATE [Concomitant]
     Indication: METABOLIC ACIDOSIS
  8. SODIUM HYDROGEN CARBONATE [Concomitant]
     Indication: OLIGURIA
  9. SODIUM HYDROGEN CARBONATE [Concomitant]
     Indication: HYPERCHLORAEMIA

REACTIONS (10)
  - APNOEA [None]
  - CARBON DIOXIDE INCREASED [None]
  - DRUG LEVEL INCREASED [None]
  - HYPERCHLORAEMIA [None]
  - HYPOTONIA [None]
  - METABOLIC ACIDOSIS [None]
  - OLIGURIA [None]
  - OVERDOSE [None]
  - SOMNOLENCE [None]
  - WEANING FAILURE [None]
